FAERS Safety Report 16149978 (Version 1)
Quarter: 2019Q2

REPORT INFORMATION
  Report Type: Spontaneous
  Country: US (occurrence: US)
  Receive Date: 20190402
  Receipt Date: 20190402
  Transmission Date: 20190711
  Serious: No
  Sender: FDA-Public Use
  Company Number: US-ALNYLAM PHARMACEUTICALS, INC.-ALN-2019-000101

PATIENT
  Age: 63 Year
  Sex: Female

DRUGS (1)
  1. ONPATTRO [Suspect]
     Active Substance: PATISIRAN SODIUM
     Indication: HEREDITARY NEUROPATHIC AMYLOIDOSIS
     Dosage: UNK
     Dates: start: 20181228, end: 20190118

REACTIONS (3)
  - Product dose omission [Unknown]
  - Neuralgia [Unknown]
  - Product supply issue [Unknown]

NARRATIVE: CASE EVENT DATE: 20190208
